FAERS Safety Report 21330318 (Version 1)
Quarter: 2022Q3

REPORT INFORMATION
  Report Type: Spontaneous
  Country: US (occurrence: US)
  Receive Date: 20220913
  Receipt Date: 20220913
  Transmission Date: 20221027
  Serious: No
  Sender: FDA-Public Use
  Company Number: US-LUNDBECK-DKLU3051994

PATIENT
  Age: 51 Year
  Sex: Male

DRUGS (2)
  1. ONFI [Suspect]
     Active Substance: CLOBAZAM
     Indication: Lennox-Gastaut syndrome
     Dosage: 1 TAB IN THE MORNING
     Route: 065
     Dates: start: 20201020, end: 20220823
  2. ONFI [Suspect]
     Active Substance: CLOBAZAM
     Dosage: 1 AND 1/2 TABS AT NIGHT
     Route: 065
     Dates: start: 20201020, end: 20220823

REACTIONS (1)
  - Mobility decreased [Unknown]

NARRATIVE: CASE EVENT DATE: 20220823
